FAERS Safety Report 15899841 (Version 2)
Quarter: 2019Q1

REPORT INFORMATION
  Report Type: Spontaneous
  Country: US (occurrence: US)
  Receive Date: 20190201
  Receipt Date: 20190314
  Transmission Date: 20190417
  Serious: No
  Sender: FDA-Public Use
  Company Number: US-PFIZER INC-2019048311

PATIENT
  Age: 43 Year
  Sex: Female

DRUGS (9)
  1. DICLOFENAC SODIUM. [Suspect]
     Active Substance: DICLOFENAC SODIUM
     Dosage: UNK
     Route: 048
  2. OXYMORPHONE [Suspect]
     Active Substance: OXYMORPHONE
     Dosage: UNK
  3. OXYCODONE [Suspect]
     Active Substance: OXYCODONE
     Dosage: UNK
  4. HYDROCODONE [Suspect]
     Active Substance: HYDROCODONE
     Dosage: UNK
  5. PLAQUENIL [Suspect]
     Active Substance: HYDROXYCHLOROQUINE SULFATE
     Indication: MALARIA
     Dosage: UNK
  6. PENNSAID [Suspect]
     Active Substance: DICLOFENAC SODIUM
     Dosage: UNK
  7. CBD [Suspect]
     Active Substance: CANNABIDIOL
     Dosage: UNK
  8. FLECTOR [Suspect]
     Active Substance: DICLOFENAC EPOLAMINE
     Indication: PAIN
     Dosage: UNK
     Route: 061
  9. VOLTAREN [Suspect]
     Active Substance: DICLOFENAC SODIUM
     Dosage: UNK

REACTIONS (1)
  - Drug effect incomplete [Unknown]
